FAERS Safety Report 17810962 (Version 1)
Quarter: 2020Q2

REPORT INFORMATION
  Report Type: Spontaneous
  Country: US (occurrence: US)
  Receive Date: 20200520
  Receipt Date: 20200520
  Transmission Date: 20200714
  Serious: Yes (Other)
  Sender: FDA-Public Use
  Company Number: None

PATIENT
  Age: 69 Year
  Sex: Male
  Weight: 134.5 kg

DRUGS (20)
  1. ENOXAPARIN INJECTION [Concomitant]
     Active Substance: ENOXAPARIN
     Dates: start: 20200512, end: 20200519
  2. FUROSEMIDE INJECTION [Concomitant]
     Active Substance: FUROSEMIDE
     Dates: start: 20200516, end: 20200520
  3. INSULIN GLARGINE [Concomitant]
     Active Substance: INSULIN GLARGINE
     Dates: start: 20200417, end: 20200520
  4. ATORVASTATIN TABLET [Concomitant]
     Active Substance: ATORVASTATIN
     Dates: start: 20200417, end: 20200520
  5. REMDESIVIR IV [Suspect]
     Active Substance: REMDESIVIR
     Indication: COVID-19
     Route: 041
     Dates: start: 20200512, end: 20200519
  6. INSULIN ASPART SLIDING SCALE [Concomitant]
     Dates: start: 20200417, end: 20200520
  7. CISATRACURIUM INJECTION [Concomitant]
     Dates: start: 20200510, end: 20200520
  8. NOREPINEPHRINE INJECTION [Concomitant]
     Dates: start: 20200512, end: 20200517
  9. FENTANYL INJECTION [Concomitant]
     Active Substance: FENTANYL
     Dates: start: 20200511, end: 20200520
  10. METOPROLOL INJECTION [Concomitant]
     Active Substance: METOPROLOL
     Dates: start: 20200516, end: 20200520
  11. VASOPRESSIN INJECTION [Concomitant]
     Active Substance: VASOPRESSIN
     Dates: start: 20200512, end: 20200517
  12. DIGOXIN INJECTION [Concomitant]
     Dates: start: 20200519, end: 20200520
  13. MELATONIN TABLET [Concomitant]
     Dates: start: 20200516, end: 20200519
  14. ASPIRIN 325MG TABLET [Concomitant]
     Dates: start: 20200518, end: 20200520
  15. PANTOPRAZOLE INJECTION [Concomitant]
     Active Substance: PANTOPRAZOLE
     Dates: start: 20200510, end: 20200520
  16. CEFEPIME [Concomitant]
     Active Substance: CEFEPIME HYDROCHLORIDE
     Dates: start: 20200512, end: 20200516
  17. TOCILIZUMAB INJECTION [Concomitant]
     Dates: start: 20200517, end: 20200517
  18. METOLAZONE TABLET [Concomitant]
     Active Substance: METOLAZONE
     Dates: start: 20200518, end: 20200520
  19. PROPOFOL INJECTION [Concomitant]
     Active Substance: PROPOFOL
     Dates: start: 20200510, end: 20200520
  20. VANCOMYCIN INJECTION [Concomitant]
     Active Substance: VANCOMYCIN
     Dates: start: 20200511, end: 20200514

REACTIONS (3)
  - Acute kidney injury [None]
  - Blood urea increased [None]
  - Blood creatinine increased [None]

NARRATIVE: CASE EVENT DATE: 20200516
